FAERS Safety Report 5623063-4 (Version None)
Quarter: 2008Q1

REPORT INFORMATION
  Report Type: 
  Country: None (occurrence: None)
  Receive Date: 20080212
  Receipt Date: 20080201
  Transmission Date: 20080703
  Serious: Yes (Other)
  Sender: FDA-Public Use
  Company Number: HQWYE287621JUL04

PATIENT
  Sex: Female

DRUGS (2)
  1. PREMPRO [Suspect]
  2. ACTIVELLA [Suspect]

REACTIONS (1)
  - BREAST CANCER METASTATIC [None]
